FAERS Safety Report 5626013-X (Version None)
Quarter: 2008Q1

REPORT INFORMATION
  Report Type: 
  Country: None (occurrence: None)
  Receive Date: 20080211
  Receipt Date: 20080125
  Transmission Date: 20080703
  Serious: Yes (Death, Other)
  Sender: FDA-Public Use
  Company Number: 2008JP000133

PATIENT
  Age: 1 Month
  Sex: Male
  Weight: 0.499 kg

DRUGS (12)
  1. FUNGUARD(MICAFUNGIN) INJECTION [Suspect]
     Indication: SYSTEMIC CANDIDA
     Dosage: 1 MG/KG, UID/QD, IV DRIP; 2 MG/KG, UID/QD, IV DRIP
     Route: 041
     Dates: start: 20070731, end: 20070808
  2. FUNGUARD(MICAFUNGIN) INJECTION [Suspect]
     Indication: SYSTEMIC CANDIDA
     Dosage: 1 MG/KG, UID/QD, IV DRIP; 2 MG/KG, UID/QD, IV DRIP
     Route: 041
     Dates: start: 20070809, end: 20070813
  3. DIFLUCAN [Concomitant]
  4. FLORID (MICONAZOLE NITRATE) PER ORAL NOS [Concomitant]
  5. VICCILLIN INJECTION [Concomitant]
  6. BIKLIN (AMIKACIN SULFATE) INJECTION [Concomitant]
  7. CEFTAZIDIME [Concomitant]
  8. HABEKACIN (ARBEKACIN) INJECTION [Concomitant]
  9. VENOGLOBULIN [Concomitant]
  10. SOLUCORTEF (HYDROCORTISONE SODIUM SUCCINATE) INJECTION [Concomitant]
  11. NEUPOGEN [Concomitant]
  12. ELASPOL (SIVELESTAT) INJECTION [Concomitant]

REACTIONS (3)
  - NEONATAL ASPHYXIA [None]
  - NEONATAL CARDIAC FAILURE [None]
  - PLATELET COUNT DECREASED [None]
